FAERS Safety Report 20223286 (Version 1)
Quarter: 2021Q4

REPORT INFORMATION
  Report Type: Report from Study
  Country: IN (occurrence: IN)
  Receive Date: 20211223
  Receipt Date: 20211223
  Transmission Date: 20220303
  Serious: Yes (Other)
  Sender: FDA-Public Use
  Company Number: IN-JNJFOC-20211237124

PATIENT

DRUGS (2)
  1. REMICADE [Suspect]
     Active Substance: INFLIXIMAB
     Indication: Crohn^s disease
     Route: 042
  2. ADALIMUMAB [Concomitant]
     Active Substance: ADALIMUMAB
     Indication: Crohn^s disease
     Route: 065

REACTIONS (8)
  - Tuberculosis [Unknown]
  - Pneumonia [Unknown]
  - Bacterial sepsis [Unknown]
  - Herpes zoster [Unknown]
  - Varicella [Unknown]
  - Infusion related reaction [Unknown]
  - Rash [Unknown]
  - Therapeutic product effect decreased [Unknown]
